FAERS Safety Report 14243502 (Version 1)
Quarter: 2017Q4

REPORT INFORMATION
  Report Type: Report from Study
  Country: MX (occurrence: MX)
  Receive Date: 20171201
  Receipt Date: 20171201
  Transmission Date: 20180321
  Serious: Yes (Hospitalization, Other)
  Sender: FDA-Public Use
  Company Number: MX-SA-2017SA030140

PATIENT
  Sex: Female

DRUGS (1)
  1. LEMTRADA [Suspect]
     Active Substance: ALEMTUZUMAB
     Indication: MULTIPLE SCLEROSIS
     Dosage: 5 VIALS/ EVERY 24 HOURS
     Route: 041
     Dates: start: 201701, end: 201701

REACTIONS (4)
  - Contusion [Recovering/Resolving]
  - Hypothyroidism [Not Recovered/Not Resolved]
  - Urinary tract infection [Recovered/Resolved]
  - Thrombocytopenia [Recovering/Resolving]

NARRATIVE: CASE EVENT DATE: 201701
